FAERS Safety Report 15248003 (Version 2)
Quarter: 2018Q3

REPORT INFORMATION
  Report Type: Report from Study
  Country: US (occurrence: US)
  Receive Date: 20180807
  Receipt Date: 20180815
  Transmission Date: 20181010
  Serious: No
  Sender: FDA-Public Use
  Company Number: US-AMGEN-USASP2018106480

PATIENT
  Age: 56 Year
  Sex: Female

DRUGS (2)
  1. ENBREL [Suspect]
     Active Substance: ETANERCEPT
     Indication: PRODUCT USED FOR UNKNOWN INDICATION
     Dosage: UNK
     Route: 065
     Dates: start: 20180618
  2. ENBREL [Suspect]
     Active Substance: ETANERCEPT
     Dosage: UNK
     Route: 065

REACTIONS (7)
  - Fatigue [Unknown]
  - Incorrect dose administered by device [Unknown]
  - Accidental exposure to product [Unknown]
  - Underdose [Unknown]
  - Swelling [Unknown]
  - Injection site swelling [Unknown]
  - Eye disorder [Unknown]

NARRATIVE: CASE EVENT DATE: 20180730
